FAERS Safety Report 9648584 (Version 3)
Quarter: 2013Q4

REPORT INFORMATION
  Report Type: Spontaneous
  Country: FR (occurrence: FR)
  Receive Date: 20131028
  Receipt Date: 20131226
  Transmission Date: 20140711
  Serious: Yes (Hospitalization, Other)
  Sender: FDA-Public Use
  Company Number: FR-PFIZER INC-2013301298

PATIENT
  Age: 83 Year
  Sex: Female

DRUGS (15)
  1. XANAX [Suspect]
     Dosage: 0.25 MG, 3X/DAY
     Route: 048
  2. XANAX [Suspect]
     Dosage: 0.125 MG, 2X/DAY (WITHDRAWAL OF 0.5 DF EVERY THREE DAYS UNTIL COMPLETE WITHDRAWAL)
     Route: 048
  3. TIAPRIDAL [Suspect]
     Dosage: 15 GTT, 3X/DAY
     Route: 048
  4. TIAPRIDAL [Suspect]
     Dosage: 5 GTT, 2X/DAY
     Route: 048
  5. IMOVANE [Suspect]
     Indication: INSOMNIA
     Dosage: 7.5 MG, 1X/DAY AT BEDTIME
     Route: 048
  6. IMOVANE [Suspect]
     Dosage: 3.75 MG, 1X/DAY AT BEDTIME
     Route: 048
  7. CYMBALTA [Suspect]
     Indication: MAJOR DEPRESSION
     Dosage: 60 MG, 1X/DAY IN THE MORNING
     Route: 048
  8. EXELON [Suspect]
     Indication: DEMENTIA ALZHEIMER^S TYPE
     Dosage: 20 MG, 2X/DAY
     Route: 048
  9. EXELON [Suspect]
     Dosage: 4.5 MGX2 IN THE MORNING AND 4.5 MG IN THE EVENING
     Route: 048
  10. EBIXA [Suspect]
     Indication: DEMENTIA ALZHEIMER^S TYPE
     Dosage: 20 MG, 1X/DAY IN THE MORNING
     Route: 048
     Dates: end: 20131017
  11. LEVOTHYROX [Concomitant]
     Indication: HYPOTHYROIDISM
     Dosage: 75 UG, DAILY
     Route: 048
  12. LEVOTHYROX [Concomitant]
     Dosage: 87.5 UG, UNK
     Route: 048
  13. TRANSIPEG [Concomitant]
     Indication: CONSTIPATION
     Dosage: 2 DFS DAILY IN THE MORNING
     Route: 048
  14. TRANSIPEG [Concomitant]
     Dosage: 2 DF, 3X/DAY
     Route: 048
  15. VOLTARENE EMULGEL [Concomitant]
     Dosage: 3 APPLICATIONS, DAILY
     Route: 061
     Dates: end: 20131017

REACTIONS (10)
  - Somnolence [Recovered/Resolved]
  - Fall [Recovered/Resolved]
  - Extrapyramidal disorder [Unknown]
  - Multiple fractures [Unknown]
  - Face injury [Unknown]
  - Pain [Unknown]
  - Wound [Unknown]
  - Clavicle fracture [Unknown]
  - Pelvic fracture [Unknown]
  - Fractured ischium [Unknown]
